FAERS Safety Report 4657781-1 (Version None)
Quarter: 2005Q2

REPORT INFORMATION
  Report Type: 
  Country: None (occurrence: None)
  Receive Date: 20050510
  Receipt Date: 20050504
  Transmission Date: 20051028
  Serious: Yes (Other)
  Sender: FDA-Public Use
  Company Number: PHEH2005US05231

PATIENT
  Sex: Female

DRUGS (4)
  1. DUONEB [Suspect]
  2. PREDNISONE [Suspect]
  3. LEVAQUIN [Suspect]
  4. FORADIL [Suspect]
     Indication: BRONCHITIS ACUTE
     Dates: start: 20050504

REACTIONS (5)
  - BRONCHOSPASM [None]
  - COUGH [None]
  - DRUG INTERACTION [None]
  - LARYNGOSPASM [None]
  - STRIDOR [None]
